FAERS Safety Report 13625660 (Version 1)
Quarter: 2017Q2

REPORT INFORMATION
  Report Type: Spontaneous
  Country: US (occurrence: US)
  Receive Date: 20170607
  Receipt Date: 20170607
  Transmission Date: 20170830
  Serious: No
  Sender: FDA-Public Use
  Company Number: None

PATIENT
  Age: 39 Year
  Sex: Male

DRUGS (1)
  1. SOVALDI [Suspect]
     Active Substance: SOFOSBUVIR

REACTIONS (7)
  - Diarrhoea [None]
  - Hyperhidrosis [None]
  - Arthritis [None]
  - Constipation [None]
  - Arthralgia [None]
  - Fatigue [None]
  - Blood glucose increased [None]

NARRATIVE: CASE EVENT DATE: 20170511
